FAERS Safety Report 5857409-9 (Version None)
Quarter: 2008Q3

REPORT INFORMATION
  Report Type: 
  Country: None (occurrence: None)
  Receive Date: 20080826
  Receipt Date: 20080822
  Transmission Date: 20090109
  Serious: Yes (Hospitalization)
  Sender: FDA-Public Use
  Company Number: JP-BRISTOL-MYERS SQUIBB COMPANY-14026611

PATIENT
  Age: 58 Year
  Sex: Female

DRUGS (6)
  1. TAXOL [Suspect]
     Indication: UTERINE CANCER
     Dosage: DOSE-200 MG ON 06DEC07 STARTED ON: 04-OCT-2007
     Route: 041
     Dates: start: 20071108, end: 20071108
  2. CARBOMERCK [Suspect]
     Indication: UTERINE CANCER
     Dosage: DOSE-450 MG ON 06DEC07. STARTED ON: 04-OCT-2007
     Route: 041
     Dates: start: 20071108, end: 20071108
  3. GRAN [Suspect]
     Indication: WHITE BLOOD CELL COUNT DECREASED
     Route: 058
     Dates: start: 20071106, end: 20071215
  4. DECADRON SRC [Concomitant]
     Route: 041
     Dates: start: 20071108, end: 20071108
  5. KYTRIL [Concomitant]
     Route: 041
     Dates: start: 20071004, end: 20071206
  6. VENA [Concomitant]
     Route: 048
     Dates: start: 20071108, end: 20071108

REACTIONS (3)
  - HEPATIC FUNCTION ABNORMAL [None]
  - PYREXIA [None]
  - RHABDOMYOLYSIS [None]
